FAERS Safety Report 10221284 (Version 1)
Quarter: 2014Q2

REPORT INFORMATION
  Report Type: Spontaneous
  Country: US (occurrence: US)
  Receive Date: 20140606
  Receipt Date: 20140606
  Transmission Date: 20141212
  Serious: No
  Sender: FDA-Public Use
  Company Number: US-GLAXOSMITHKLINE-A1070629A

PATIENT
  Age: 53 Year
  Sex: Male

DRUGS (14)
  1. BREO ELLIPTA [Suspect]
     Indication: DYSPNOEA
     Dosage: 1PUFF PER DAY
     Route: 055
     Dates: start: 20140405
  2. OXYGEN [Concomitant]
  3. CRESTOR [Concomitant]
  4. METFORMIN [Concomitant]
  5. LEVETIRACETAM [Concomitant]
  6. VERAPAMIL [Concomitant]
  7. PANTOPRAZOLE [Concomitant]
  8. GLIMEPIRIDE [Concomitant]
  9. CLOPIDOGREL [Concomitant]
  10. FENOFIBRATE [Concomitant]
  11. MULTIVITAMIN [Concomitant]
  12. LUTEIN [Concomitant]
  13. HYDROCODONE [Concomitant]
  14. CHANTIX [Concomitant]

REACTIONS (3)
  - Asthenia [Recovering/Resolving]
  - Joint stiffness [Recovering/Resolving]
  - Hypersomnia [Recovering/Resolving]
